FAERS Safety Report 9549503 (Version 1)
Quarter: 2013Q3

REPORT INFORMATION
  Report Type: Spontaneous
  Country: NL (occurrence: NL)
  Receive Date: 20130924
  Receipt Date: 20130924
  Transmission Date: 20140515
  Serious: Yes (Hospitalization, Other)
  Sender: FDA-Public Use
  Company Number: NL-BRISTOL-MYERS SQUIBB COMPANY-19386762

PATIENT
  Age: 77 Year
  Sex: Male

DRUGS (2)
  1. KENACORT-A INJ 10 MG/ML [Suspect]
  2. ACENOCOUMAROL [Interacting]
     Indication: ATRIAL FIBRILLATION
     Dates: start: 2008

REACTIONS (2)
  - Cerebral haemorrhage [Recovering/Resolving]
  - Drug interaction [Recovering/Resolving]
